FAERS Safety Report 14647137 (Version 3)
Quarter: 2018Q2

REPORT INFORMATION
  Report Type: Spontaneous
  Country: GR (occurrence: GR)
  Receive Date: 20180316
  Receipt Date: 20180530
  Transmission Date: 20180711
  Serious: Yes (Death, Life-Threatening, Hospitalization, Other)
  Sender: FDA-Public Use
  Company Number: GR-AXELLIA-001475

PATIENT
  Age: 72 Year
  Sex: Female

DRUGS (3)
  1. VALACICLOVIR [Concomitant]
     Active Substance: VALACYCLOVIR HYDROCHLORIDE
     Indication: PROPHYLAXIS
     Route: 065
  2. VORICONAZOLE. [Suspect]
     Active Substance: VORICONAZOLE
     Indication: BRONCHOPULMONARY ASPERGILLOSIS
     Dosage: ALSO RECEIVED 200 MG
  3. SULFAMETHOXAZOLE/TRIMETHOPRIM [Suspect]
     Active Substance: SULFAMETHOXAZOLE\TRIMETHOPRIM
     Indication: BRONCHOPULMONARY ASPERGILLOSIS
     Dosage: STRENGTH: SULPHAMETHOXAZOLE 400 MG, TRIMETHOPRIM 80 MG

REACTIONS (20)
  - Drug ineffective [Unknown]
  - Disease progression [Fatal]
  - Hypoxia [None]
  - Tachypnoea [None]
  - Blood lactate dehydrogenase increased [None]
  - Sputum abnormal [None]
  - C-reactive protein decreased [None]
  - Immunology test abnormal [None]
  - Lung infiltration [None]
  - C-reactive protein increased [None]
  - Haemoglobin decreased [None]
  - Pneumocystis jirovecii infection [Fatal]
  - Computerised tomogram abnormal [None]
  - Sinus tachycardia [None]
  - Pneumocystis jirovecii pneumonia [Fatal]
  - Condition aggravated [Fatal]
  - Multiple organ dysfunction syndrome [Fatal]
  - Aspergillus infection [Fatal]
  - Laboratory test abnormal [None]
  - Bronchopulmonary aspergillosis [Fatal]
